FAERS Safety Report 22595121 (Version 1)
Quarter: 2023Q2

REPORT INFORMATION
  Report Type: Spontaneous
  Country: SB (occurrence: SB)
  Receive Date: 20230613
  Receipt Date: 20230613
  Transmission Date: 20230722
  Serious: Yes (Other)
  Sender: FDA-Public Use
  Company Number: SB-SUN PHARMACEUTICAL INDUSTRIES LTD-2023RR-393538

PATIENT
  Age: 47 Year
  Sex: Male

DRUGS (9)
  1. METFORMIN [Suspect]
     Active Substance: METFORMIN HYDROCHLORIDE
     Indication: Type 2 diabetes mellitus
     Dosage: UNK
  2. METFORMIN [Suspect]
     Active Substance: METFORMIN HYDROCHLORIDE
     Dosage: 2 GRAM, DAILY
     Route: 065
  3. CIPROFLOXACIN [Suspect]
     Active Substance: CIPROFLOXACIN
     Indication: Pneumonia klebsiella
     Dosage: 500 MILLIGRAM, BID
     Route: 048
  4. CLOXACILLIN [Suspect]
     Active Substance: CLOXACILLIN
     Indication: Pneumonia klebsiella
     Dosage: 3000 MILLIGRAM, DAILY
     Route: 065
  5. CLOXACILLIN [Suspect]
     Active Substance: CLOXACILLIN
     Dosage: UNK
     Route: 048
  6. FLAGYL [Suspect]
     Active Substance: METRONIDAZOLE\METRONIDAZOLE HYDROCHLORIDE
     Indication: Sepsis
     Dosage: 1200 MILLIGRAM, DAILY
     Route: 065
  7. FLAGYL [Suspect]
     Active Substance: METRONIDAZOLE\METRONIDAZOLE HYDROCHLORIDE
     Dosage: UNK
     Route: 048
  8. MIXTARD HUMAN 70/30 [Concomitant]
     Active Substance: INSULIN HUMAN
     Indication: Type 2 diabetes mellitus
     Dosage: 20 UNITS MORNING, 15 UNITS EVENING
     Route: 065
  9. Paradol [Concomitant]
     Indication: Pneumonia klebsiella
     Dosage: 1 GRAM, QID
     Route: 065

REACTIONS (1)
  - Drug ineffective [Unknown]
